FAERS Safety Report 9908294 (Version 2)
Quarter: 2014Q1

REPORT INFORMATION
  Report Type: Report from Study
  Country: FR (occurrence: FR)
  Receive Date: 20140219
  Receipt Date: 20140219
  Transmission Date: 20141002
  Serious: Yes (Hospitalization, Other)
  Sender: FDA-Public Use
  Company Number: FR-ROCHE-1164827

PATIENT
  Age: 63 Year
  Sex: Female

DRUGS (1)
  1. RITUXIMAB [Suspect]
     Indication: RHEUMATOID ARTHRITIS
     Route: 042
     Dates: start: 20080827, end: 20110808

REACTIONS (12)
  - Genitourinary tract infection [Unknown]
  - Asthenia [Not Recovered/Not Resolved]
  - Asthenia [Recovered/Resolved]
  - Headache [Recovered/Resolved]
  - Gout [Recovered/Resolved]
  - Urinary tract infection [Recovered/Resolved]
  - Pyelonephritis [Recovered/Resolved]
  - Fall [Unknown]
  - Skull fracture [Not Recovered/Not Resolved]
  - Wrist fracture [Not Recovered/Not Resolved]
  - Sarcoidosis [Not Recovered/Not Resolved]
  - Erysipelas [Recovered/Resolved]
